FAERS Safety Report 8962594 (Version 2)
Quarter: 2013Q1

REPORT INFORMATION
  Report Type: Spontaneous
  Country: FR (occurrence: FR)
  Receive Date: 20121214
  Receipt Date: 20130319
  Transmission Date: 20140127
  Serious: Yes (Death)
  Sender: FDA-Public Use
  Company Number: FR-NOVOPROD-365931

PATIENT
  Age: 85 Year
  Sex: Male

DRUGS (8)
  1. INSULATARD NPH HUMAN [Suspect]
     Indication: TYPE 2 DIABETES MELLITUS
     Dosage: UNK
     Route: 058
     Dates: start: 20120401, end: 20120902
  2. CALCIPARINE [Suspect]
     Indication: PRODUCT USED FOR UNKNOWN INDICATION
     Dosage: 5000/0.2 ML
     Route: 058
     Dates: start: 20120811, end: 20120822
  3. LASILIX                            /00032601/ [Suspect]
     Indication: PRODUCT USED FOR UNKNOWN INDICATION
     Dosage: UNK
     Route: 048
     Dates: start: 20120812, end: 20120823
  4. TAHOR [Suspect]
     Indication: PRODUCT USED FOR UNKNOWN INDICATION
     Dosage: UNK
     Route: 048
     Dates: start: 20120812, end: 20120821
  5. CARDENSIEL [Suspect]
     Indication: PRODUCT USED FOR UNKNOWN INDICATION
     Dosage: UNK
     Route: 048
     Dates: start: 20120812, end: 20120902
  6. CARDENSIEL [Suspect]
     Dosage: UNK
     Route: 048
  7. INEXIUM [Suspect]
     Indication: PRODUCT USED FOR UNKNOWN INDICATION
     Dosage: UNK
     Route: 048
     Dates: start: 20120812, end: 20120825
  8. KARDEGIC [Suspect]
     Indication: PRODUCT USED FOR UNKNOWN INDICATION
     Dosage: UNK
     Route: 048
     Dates: start: 20120812, end: 20120822

REACTIONS (1)
  - Heparin-induced thrombocytopenia [Fatal]
